FAERS Safety Report 8521005-5 (Version None)
Quarter: 2012Q3

REPORT INFORMATION
  Report Type: 
  Country: None (occurrence: None)
  Receive Date: 20120719
  Receipt Date: 20120713
  Transmission Date: 20120928
  Serious: Yes (Other)
  Sender: FDA-Public Use
  Company Number: US-PFIZER INC-2012162670

PATIENT
  Sex: Female

DRUGS (4)
  1. PREMARIN [Interacting]
     Dosage: 0.625 MG, WEEKLY
     Route: 048
  2. LEVOTHYROXINE [Concomitant]
     Dosage: UNK
  3. CIPROFLOXACIN [Interacting]
     Indication: URINARY TRACT INFECTION
     Dosage: 250 MG, 2X/WEEK
     Route: 048
     Dates: start: 20111201
  4. PREMARIN [Suspect]
     Indication: HOT FLUSH
     Dosage: 0.625 MG, 1X/DAY
     Route: 048
     Dates: start: 19850101

REACTIONS (4)
  - INFECTION [None]
  - URINARY TRACT INFECTION [None]
  - DRUG INTERACTION [None]
  - DRUG INEFFECTIVE [None]
